FAERS Safety Report 18595433 (Version 2)
Quarter: 2020Q4

REPORT INFORMATION
  Report Type: Spontaneous
  Country: US (occurrence: US)
  Receive Date: 20201209
  Receipt Date: 20201224
  Transmission Date: 20210114
  Serious: Yes (Hospitalization)
  Sender: FDA-Public Use
  Company Number: US-VERTEX PHARMACEUTICALS-2020-024181

PATIENT
  Age: 55 Year
  Sex: Male

DRUGS (32)
  1. COREG [Concomitant]
     Active Substance: CARVEDILOL
  2. CREON [Concomitant]
     Active Substance: PANCRELIPASE AMYLASE\PANCRELIPASE LIPASE\PANCRELIPASE PROTEASE
     Dosage: 12K-38K-60K
  3. FLUTICASONE PROPIONATE. [Concomitant]
     Active Substance: FLUTICASONE PROPIONATE
  4. SIMETHICONE (DIMETHICONE) [Concomitant]
     Active Substance: DIMETHICONE
  5. TRIKAFTA [Suspect]
     Active Substance: ELEXACAFTOR\IVACAFTOR\TEZACAFTOR
     Indication: CYSTIC FIBROSIS
     Dosage: 2 TABS (100 MG ELEXACAFTOR/50 MG TEZACAFTOR/75 MG IVACAFTOR) AM; 1 TAB (150 MG IVACAFTOR) PM
     Route: 048
     Dates: start: 20200105
  6. ADDERALL [Concomitant]
     Active Substance: AMPHETAMINE ASPARTATE\AMPHETAMINE SULFATE\DEXTROAMPHETAMINE SACCHARATE\DEXTROAMPHETAMINE SULFATE
     Dosage: 10 MG
  7. SPIRIVA RESPIMAT [Concomitant]
     Active Substance: TIOTROPIUM BROMIDE
  8. TRULANCE [Concomitant]
     Active Substance: PLECANATIDE
  9. LEVALBUTEROL HCL [Concomitant]
     Active Substance: LEVALBUTEROL HYDROCHLORIDE
  10. ZOFRAN [Concomitant]
     Active Substance: ONDANSETRON HYDROCHLORIDE
  11. OMEPRAZOLE. [Concomitant]
     Active Substance: OMEPRAZOLE
  12. LINZESS [Concomitant]
     Active Substance: LINACLOTIDE
  13. ALFUZOSIN HCL [Concomitant]
     Active Substance: ALFUZOSIN HYDROCHLORIDE
  14. HYPERSAL [Concomitant]
     Active Substance: SODIUM CHLORIDE
  15. COLACE [Concomitant]
     Active Substance: DOCUSATE SODIUM
  16. POTASSIUM CHLORIDE. [Concomitant]
     Active Substance: POTASSIUM CHLORIDE
  17. NYSTATIN. [Concomitant]
     Active Substance: NYSTATIN
  18. TUMS [Concomitant]
     Active Substance: CALCIUM CARBONATE
  19. PLAQUENIL [Concomitant]
     Active Substance: HYDROXYCHLOROQUINE SULFATE
  20. METHOCARBAMOL. [Concomitant]
     Active Substance: METHOCARBAMOL
  21. SUCRALFATE. [Concomitant]
     Active Substance: SUCRALFATE
  22. PULMOZYME [Concomitant]
     Active Substance: DORNASE ALFA
  23. OXYCODONE HYDROCHLORIDE. [Concomitant]
     Active Substance: OXYCODONE HYDROCHLORIDE
  24. AMBIEN [Concomitant]
     Active Substance: ZOLPIDEM TARTRATE
  25. FUROSEMIDE. [Concomitant]
     Active Substance: FUROSEMIDE
  26. VITAMIN D [COLECALCIFEROL] [Concomitant]
     Active Substance: CHOLECALCIFEROL
  27. OXYCONTIN [Concomitant]
     Active Substance: OXYCODONE HYDROCHLORIDE
  28. FORTEO [Concomitant]
     Active Substance: TERIPARATIDE
  29. TOBRAMYCIN. [Concomitant]
     Active Substance: TOBRAMYCIN
  30. BACLOFEN. [Concomitant]
     Active Substance: BACLOFEN
  31. LEXAPRO [Concomitant]
     Active Substance: ESCITALOPRAM OXALATE
  32. MILK OF MAGNESIA [Concomitant]
     Active Substance: MAGNESIUM HYDROXIDE

REACTIONS (1)
  - Infective pulmonary exacerbation of cystic fibrosis [Unknown]

NARRATIVE: CASE EVENT DATE: 202011
